FAERS Safety Report 9284429 (Version 2)
Quarter: 2013Q3

REPORT INFORMATION
  Report Type: Spontaneous
  Country: US (occurrence: US)
  Receive Date: 20130510
  Receipt Date: 20130703
  Transmission Date: 20140515
  Serious: Yes (Hospitalization)
  Sender: FDA-Public Use
  Company Number: US-UCBSA-085346

PATIENT
  Sex: Male

DRUGS (4)
  1. CIMZIA [Suspect]
     Indication: CROHN^S DISEASE
     Dates: start: 20130526
  2. CIMZIA [Suspect]
     Indication: CROHN^S DISEASE
     Dates: end: 201304
  3. NEXIUM [Concomitant]
  4. PREDNISONE [Concomitant]
     Dosage: 15ML FOR 3 DAYS, THEN 10 ML
     Dates: end: 20130514

REACTIONS (5)
  - Cough [Recovering/Resolving]
  - Pyrexia [Recovered/Resolved]
  - Asthma [Unknown]
  - Weight decreased [Unknown]
  - Ulcer [Unknown]
